FAERS Safety Report 25307920 (Version 2)
Quarter: 2025Q2

REPORT INFORMATION
  Report Type: Spontaneous
  Country: US (occurrence: US)
  Receive Date: 20250513
  Receipt Date: 20250609
  Transmission Date: 20250717
  Serious: Yes (Hospitalization, Other)
  Sender: SHIONOGI
  Company Number: US-shionogi-202500004606

PATIENT
  Age: 60 Year
  Sex: Male

DRUGS (6)
  1. FETROJA [Suspect]
     Active Substance: CEFIDEROCOL SULFATE TOSYLATE
     Indication: Osteomyelitis
     Dates: start: 20250120, end: 20250302
  2. FETROJA [Suspect]
     Active Substance: CEFIDEROCOL SULFATE TOSYLATE
     Indication: Acinetobacter infection
     Dates: start: 20250421, end: 20250422
  3. FETROJA [Suspect]
     Active Substance: CEFIDEROCOL SULFATE TOSYLATE
     Indication: Wound
  4. FETROJA [Suspect]
     Active Substance: CEFIDEROCOL SULFATE TOSYLATE
     Indication: Drug resistance
  5. FETROJA [Suspect]
     Active Substance: CEFIDEROCOL SULFATE TOSYLATE
     Indication: Urinary tract infection
  6. DURLOBACTAM\SULBACTAM [Concomitant]
     Active Substance: DURLOBACTAM\SULBACTAM
     Indication: Skin infection

REACTIONS (2)
  - Pathogen resistance [Unknown]
  - Drug resistance [Recovered/Resolved]
